FAERS Safety Report 5882788 (Version 3)
Quarter: 2013Q3

REPORT INFORMATION
  Report Type: Spontaneous
  Country: FR (occurrence: FR)
  Receive Date: 20050921
  Receipt Date: 20130812
  Transmission Date: 20140515
  Serious: Yes (Hospitalization)
  Sender: FDA-Public Use
  Company Number: FR-BRISTOL-MYERS SQUIBB COMPANY-13105952

PATIENT
  Age: 29 Year
  Sex: Male

DRUGS (4)
  1. REYATAZ CAPS 150 MG [Suspect]
     Indication: HIV INFECTION
     Route: 048
  2. VIDEX [Concomitant]
     Indication: ANTIRETROVIRAL THERAPY
  3. VIREAD [Concomitant]
     Indication: ANTIRETROVIRAL THERAPY
  4. NORVIR [Concomitant]
     Indication: ANTIRETROVIRAL THERAPY

REACTIONS (1)
  - Nephrolithiasis [Unknown]
